FAERS Safety Report 7322977-7 (Version None)
Quarter: 2011Q1

REPORT INFORMATION
  Report Type: 
  Country: None (occurrence: None)
  Receive Date: 20110301
  Receipt Date: 20110218
  Transmission Date: 20110831
  Serious: Yes (Hospitalization)
  Sender: FDA-Public Use
  Company Number: PHHY2011US14485

PATIENT
  Sex: Female
  Weight: 94.331 kg

DRUGS (1)
  1. GILENYA [Suspect]
     Indication: MULTIPLE SCLEROSIS
     Dosage: 0.5 MG, QD
     Route: 048
     Dates: start: 20110215

REACTIONS (4)
  - CARDIOMYOPATHY [None]
  - FEELING ABNORMAL [None]
  - ELECTROCARDIOGRAM ABNORMAL [None]
  - HEADACHE [None]
